FAERS Safety Report 10048022 (Version 2)
Quarter: 2014Q1

REPORT INFORMATION
  Report Type: Spontaneous
  Country: DE (occurrence: DE)
  Receive Date: 20140331
  Receipt Date: 20140331
  Transmission Date: 20141002
  Serious: Yes (Hospitalization, Other)
  Sender: FDA-Public Use
  Company Number: DE-B.I. PHARMACEUTICALS,INC./RIDGEFIELD-2011-DE-06410DE

PATIENT
  Age: 90 Year
  Sex: Male
  Weight: 63 kg

DRUGS (3)
  1. PRADAXA [Suspect]
     Indication: ATRIAL FIBRILLATION
     Dosage: 220 MG
     Route: 065
     Dates: start: 20101101
  2. VERAPAMIL [Concomitant]
     Dosage: 80 MG
     Route: 065
  3. SIMVASTATIN [Concomitant]
     Dosage: 10 MG
     Route: 065

REACTIONS (8)
  - Bladder cancer [Unknown]
  - Abdominal pain [Unknown]
  - Cerebrovascular accident [Unknown]
  - Haematuria [Recovered/Resolved]
  - Haematuria [Unknown]
  - Haematuria [Unknown]
  - Asthenia [Unknown]
  - Haemoglobin decreased [Unknown]
